FAERS Safety Report 6929183-6 (Version None)
Quarter: 2010Q3

REPORT INFORMATION
  Report Type: 
  Country: None (occurrence: None)
  Receive Date: 20100812
  Receipt Date: 20100803
  Transmission Date: 20110219
  Serious: Yes (Hospitalization, Other)
  Sender: FDA-Public Use
  Company Number: 663735

PATIENT
  Age: 73 Year
  Sex: Male

DRUGS (1)
  1. EPIRUBICIN HYDROCHLORIDE [Suspect]
     Indication: BLADDER NEOPLASM
     Dosage: INTRAVESICAL
     Route: 043

REACTIONS (9)
  - BLADDER NECROSIS [None]
  - BLADDER PERFORATION [None]
  - CELLULITIS [None]
  - CYSTITIS NONINFECTIVE [None]
  - EXTRAVASATION [None]
  - NO THERAPEUTIC RESPONSE [None]
  - REDUCED BLADDER CAPACITY [None]
  - SOFT TISSUE HAEMORRHAGE [None]
  - SOFT TISSUE NECROSIS [None]
